FAERS Safety Report 5119522-3 (Version None)
Quarter: 2006Q4

REPORT INFORMATION
  Report Type: 
  Country: None (occurrence: None)
  Receive Date: 20061003
  Receipt Date: 20060928
  Transmission Date: 20070319
  Serious: Yes (Death, Hospitalization)
  Sender: FDA-Public Use
  Company Number: US-BRISTOL-MYERS SQUIBB COMPANY-13523998

PATIENT
  Age: 72 Year
  Sex: Male
  Weight: 92 kg

DRUGS (15)
  1. PACLITAXEL [Suspect]
     Indication: NON-SMALL CELL LUNG CANCER
     Route: 042
     Dates: start: 20051214, end: 20051214
  2. CARBOPLATIN [Suspect]
     Indication: NON-SMALL CELL LUNG CANCER
     Route: 042
     Dates: start: 20051214, end: 20051214
  3. TLK286 [Suspect]
     Indication: NON-SMALL CELL LUNG CANCER
     Route: 042
     Dates: start: 20051214, end: 20051214
  4. GLIPIZIDE [Concomitant]
  5. LEXAPRO [Concomitant]
  6. LANOXIN [Concomitant]
  7. LASIX [Concomitant]
  8. LOMOTIL [Concomitant]
  9. IMODIUM [Concomitant]
  10. OXYGEN [Concomitant]
  11. ASPIRIN [Concomitant]
  12. LEVAQUIN [Concomitant]
  13. NEUPOGEN [Concomitant]
  14. ALBUTEROL [Concomitant]
  15. ATROVENT [Concomitant]

REACTIONS (4)
  - DIARRHOEA [None]
  - LEUKOPENIA [None]
  - MENTAL STATUS CHANGES [None]
  - RESPIRATORY FAILURE [None]
